FAERS Safety Report 7796736-5 (Version None)
Quarter: 2011Q4

REPORT INFORMATION
  Report Type: 
  Country: None (occurrence: None)
  Receive Date: 20111003
  Receipt Date: 20110926
  Transmission Date: 20120403
  Serious: Yes (Other)
  Sender: FDA-Public Use
  Company Number: 0095095020110926002.0

PATIENT
  Age: 17 Year
  Sex: Male

DRUGS (1)
  1. ZOLPIMIST [Suspect]
     Indication: INSOMNIA
     Dosage: 10 MG ORAL SPRAY
     Route: 048
     Dates: end: 20010917

REACTIONS (6)
  - LACERATION [None]
  - SOMNOLENCE [None]
  - FALL [None]
  - HEAD INJURY [None]
  - DRUG SCREEN POSITIVE [None]
  - INTENTIONAL DRUG MISUSE [None]
